FAERS Safety Report 23955536 (Version 1)
Quarter: 2024Q2

REPORT INFORMATION
  Report Type: Spontaneous
  Country: GB (occurrence: GB)
  Receive Date: 20240610
  Receipt Date: 20240610
  Transmission Date: 20240716
  Serious: Yes (Other)
  Sender: FDA-Public Use
  Company Number: None

PATIENT
  Age: 7 Decade
  Sex: Male

DRUGS (4)
  1. OLANZAPINE [Suspect]
     Active Substance: OLANZAPINE
     Indication: Mania
  2. DIAZEPAM [Suspect]
     Active Substance: DIAZEPAM
     Indication: Mania
  3. LITHIUM [Suspect]
     Active Substance: LITHIUM
  4. CLONAZEPAM [Suspect]
     Active Substance: CLONAZEPAM

REACTIONS (2)
  - Parkinsonism [Unknown]
  - Drug ineffective [Unknown]
